FAERS Safety Report 16112691 (Version 1)
Quarter: 2019Q1

REPORT INFORMATION
  Report Type: Spontaneous
  Country: US (occurrence: US)
  Receive Date: 20190325
  Receipt Date: 20190325
  Transmission Date: 20190418
  Serious: Yes (Other)
  Sender: FDA-Public Use
  Company Number: US-GILEAD-2019-0397446

PATIENT
  Age: 54 Year
  Sex: Male
  Weight: 64.1 kg

DRUGS (1)
  1. YESCARTA [Suspect]
     Active Substance: AXICABTAGENE CILOLEUCEL
     Indication: DIFFUSE LARGE B-CELL LYMPHOMA
     Dosage: UNK, ONCE
     Route: 042
     Dates: start: 20190122, end: 20190122

REACTIONS (2)
  - Cytokine release syndrome [Unknown]
  - CAR T-cell-related encephalopathy syndrome [Unknown]

NARRATIVE: CASE EVENT DATE: 20190125
